FAERS Safety Report 5352957-2 (Version None)
Quarter: 2007Q2

REPORT INFORMATION
  Report Type: 
  Country: None (occurrence: None)
  Receive Date: 20070611
  Receipt Date: 20070601
  Transmission Date: 20071010
  Serious: Yes (Hospitalization)
  Sender: FDA-Public Use
  Company Number: US-AMGEN-STX226280

PATIENT
  Sex: Female
  Weight: 59 kg

DRUGS (2)
  1. ENBREL [Suspect]
     Indication: RHEUMATOID ARTHRITIS
     Route: 058
     Dates: start: 20040201
  2. PLAQUENIL [Concomitant]
     Route: 065
     Dates: start: 19820101

REACTIONS (5)
  - BIOPSY BREAST [None]
  - BLADDER PROLAPSE [None]
  - INJECTION SITE PAIN [None]
  - URINARY TRACT INFECTION [None]
  - UTERINE PROLAPSE [None]
